FAERS Safety Report 9460096 (Version 3)
Quarter: 2015Q1

REPORT INFORMATION
  Report Type: Report from Study
  Country: CA (occurrence: CA)
  Receive Date: 20130815
  Receipt Date: 20150113
  Transmission Date: 20150721
  Serious: Yes (Other)
  Sender: FDA-Public Use
  Company Number: CA-INCYTE CORPORATION-2013IN001835

PATIENT
  Sex: Male

DRUGS (3)
  1. JAKAFI [Suspect]
     Active Substance: RUXOLITINIB
     Dosage: 22 MG, BID
     Route: 048
     Dates: start: 20141020, end: 20141030
  2. JAKAFI [Suspect]
     Active Substance: RUXOLITINIB
     Dosage: 7.5 MG, BID
     Route: 048
     Dates: start: 201412
  3. JAKAFI [Suspect]
     Active Substance: RUXOLITINIB
     Indication: MYELOFIBROSIS
     Dosage: 15 MG, BID
     Route: 048
     Dates: start: 20120903

REACTIONS (6)
  - Device related sepsis [Unknown]
  - Confusional state [Recovering/Resolving]
  - Mood swings [Recovering/Resolving]
  - Splenomegaly [Recovering/Resolving]
  - Full blood count decreased [Unknown]
  - Feeling abnormal [Recovering/Resolving]
